FAERS Safety Report 7560266-6 (Version None)
Quarter: 2011Q2

REPORT INFORMATION
  Report Type: 
  Country: None (occurrence: None)
  Receive Date: 20110621
  Receipt Date: 20110607
  Transmission Date: 20111010
  Serious: Yes (Other)
  Sender: FDA-Public Use
  Company Number: CA-JNJFOC-20110604379

PATIENT
  Sex: Male
  Weight: 73 kg

DRUGS (10)
  1. REMICADE [Suspect]
     Indication: CROHN'S DISEASE
     Route: 042
     Dates: start: 20091201
  2. PRAMIPEXOLE DIHYDROCHLORIDE [Concomitant]
  3. LOPERAMIDE [Concomitant]
     Dosage: 2 TO 2.5 MG DAILY
  4. RANITIDINE [Concomitant]
  5. VITAMIN B-12 [Concomitant]
     Dosage: 1200
  6. PREDNISONE [Concomitant]
  7. HYDRA-ZIDE [Concomitant]
  8. AZATHIOPRINE [Concomitant]
  9. LORAZEPAM [Concomitant]
  10. ADVAIR DISKUS 100/50 [Concomitant]
     Dosage: 2 PUFFS TWICE DAILY

REACTIONS (2)
  - PNEUMONIA [None]
  - WEIGHT DECREASED [None]
